FAERS Safety Report 10097503 (Version 1)
Quarter: 2014Q2

REPORT INFORMATION
  Report Type: Report from Study
  Country: US (occurrence: US)
  Receive Date: 20140423
  Receipt Date: 20140423
  Transmission Date: 20141212
  Serious: Yes (Hospitalization, Other)
  Sender: FDA-Public Use
  Company Number: US-ROCHE-1360065

PATIENT
  Age: 70 Year
  Sex: Female

DRUGS (13)
  1. CELLCEPT [Suspect]
     Indication: PEMPHIGOID
     Route: 048
     Dates: start: 20080519
  2. TETRACYCLINE [Suspect]
     Indication: PRODUCT USED FOR UNKNOWN INDICATION
     Route: 065
  3. BACTRIM [Suspect]
     Indication: PRODUCT USED FOR UNKNOWN INDICATION
     Route: 065
  4. PREDNISONE [Concomitant]
  5. CLOBETASOL [Concomitant]
  6. ATARAX (UNITED STATES) [Concomitant]
     Route: 065
  7. KENALOG (UNITED STATES) [Concomitant]
     Route: 065
  8. ANTIVERT [Concomitant]
  9. TRIAMCINOLONE [Concomitant]
     Route: 061
  10. VANOS [Concomitant]
  11. ALTABAX [Concomitant]
  12. LEVAQUIN [Concomitant]
  13. HYDROXYZINE [Concomitant]

REACTIONS (26)
  - Renal failure [Unknown]
  - Asthenia [Unknown]
  - Blood potassium decreased [Unknown]
  - Tendon rupture [Unknown]
  - Anaemia [Unknown]
  - Circulatory collapse [Unknown]
  - Breast neoplasm [Unknown]
  - Swelling [Unknown]
  - Skin lesion [Unknown]
  - Sleep apnoea syndrome [Unknown]
  - Pemphigoid [Unknown]
  - Malaise [Unknown]
  - Fatigue [Unknown]
  - Paronychia [Unknown]
  - Abscess [Recovered/Resolved]
  - Pemphigoid [Unknown]
  - Gastrointestinal haemorrhage [Unknown]
  - Urinary tract infection [Unknown]
  - Lip blister [Unknown]
  - Pain [Unknown]
  - Pigmentation disorder [Unknown]
  - Dizziness [Unknown]
  - Abdominal pain [Unknown]
  - Neurodermatitis [Unknown]
  - Blister [Unknown]
  - Gastrointestinal ulcer [Unknown]
